FAERS Safety Report 6471542-2 (Version None)
Quarter: 2009Q4

REPORT INFORMATION
  Report Type: 
  Country: None (occurrence: None)
  Receive Date: 20091201
  Receipt Date: 20091116
  Transmission Date: 20100525
  Serious: Yes (Congenital Anomaly)
  Sender: FDA-Public Use
  Company Number: 8037219

PATIENT
  Sex: Male

DRUGS (2)
  1. KEPPRA [Suspect]
     Indication: CONVULSION
     Dosage: 1500 MG /D TRP
     Route: 064
  2. VITAMIN TAB [Concomitant]

REACTIONS (5)
  - ASTIGMATISM [None]
  - CONGENITAL NYSTAGMUS [None]
  - HAEMANGIOMA OF SKIN [None]
  - HYPERMETROPIA [None]
  - MATERNAL DRUGS AFFECTING FOETUS [None]
